FAERS Safety Report 17900266 (Version 1)
Quarter: 2020Q2

REPORT INFORMATION
  Report Type: Spontaneous
  Country: US (occurrence: US)
  Receive Date: 20200615
  Receipt Date: 20200615
  Transmission Date: 20200714
  Serious: Yes (Death)
  Sender: FDA-Public Use
  Company Number: None

PATIENT
  Sex: Male

DRUGS (11)
  1. COTELLIC [Suspect]
     Active Substance: COBIMETINIB
     Indication: MALIGNANT MELANOMA
     Dosage: ?          OTHER ROUTE:PO 21 D ON - 7 D OFF?
     Dates: start: 20200520
  2. AMLODIPINE [Concomitant]
     Active Substance: AMLODIPINE BESYLATE
  3. ZELBORAF [Suspect]
     Active Substance: VEMURAFENIB
     Indication: MALIGNANT MELANOMA
     Route: 048
     Dates: start: 20200520
  4. DEXAMETHASON [Concomitant]
     Active Substance: DEXAMETHASONE
  5. ESOMEPRA MAG [Concomitant]
  6. HYDROCOC/APAP [Concomitant]
  7. PHENYTOIN EX [Concomitant]
  8. LEVETIRACETA [Concomitant]
     Active Substance: LEVETIRACETAM
  9. ALLOPURINOL. [Concomitant]
     Active Substance: ALLOPURINOL
  10. LOSARTAN POT [Concomitant]
     Active Substance: LOSARTAN POTASSIUM
  11. SIMVASTATIN. [Concomitant]
     Active Substance: SIMVASTATIN

REACTIONS (1)
  - Death [None]
